FAERS Safety Report 25146940 (Version 3)
Quarter: 2025Q3

REPORT INFORMATION
  Report Type: Spontaneous
  Country: US (occurrence: US)
  Receive Date: 20250401
  Receipt Date: 20250814
  Transmission Date: 20251021
  Serious: Yes (Other)
  Sender: ABBVIE
  Company Number: US-ABBVIE-6204489

PATIENT
  Age: 25 Year
  Sex: Female
  Weight: 76 kg

DRUGS (2)
  1. LILETTA [Suspect]
     Active Substance: LEVONORGESTREL
     Indication: Product used for unknown indication
     Route: 015
     Dates: start: 20230524, end: 20250325
  2. LILETTA [Suspect]
     Active Substance: LEVONORGESTREL
     Route: 015
     Dates: start: 20250325

REACTIONS (2)
  - Heavy menstrual bleeding [Unknown]
  - Device expulsion [Unknown]

NARRATIVE: CASE EVENT DATE: 20250101
